FAERS Safety Report 19847081 (Version 2)
Quarter: 2021Q4

REPORT INFORMATION
  Report Type: Spontaneous
  Country: US (occurrence: US)
  Receive Date: 20210917
  Receipt Date: 20211005
  Transmission Date: 20220303
  Serious: No
  Sender: FDA-Public Use
  Company Number: US-AMGEN-USASP2021143061

PATIENT
  Age: 25 Year
  Sex: Male
  Weight: 83.9 kg

DRUGS (4)
  1. OTEZLA [Suspect]
     Active Substance: APREMILAST
     Indication: Psoriasis
     Dosage: 30 MILLIGRAM
     Route: 048
  2. CLOBETASOL [Concomitant]
     Active Substance: CLOBETASOL
  3. PROPIONATE [Concomitant]
  4. DESONIDE [Concomitant]
     Active Substance: DESONIDE

REACTIONS (1)
  - Somnolence [Unknown]
